FAERS Safety Report 15943414 (Version 6)
Quarter: 2019Q4

REPORT INFORMATION
  Report Type: Report from Study
  Country: CA (occurrence: CA)
  Receive Date: 20190210
  Receipt Date: 20191116
  Transmission Date: 20200122
  Serious: Yes (Other)
  Sender: FDA-Public Use
  Company Number: PHHY2014CA155471

PATIENT
  Age: 62 Year
  Sex: Male

DRUGS (7)
  1. AFINITOR [Suspect]
     Active Substance: EVEROLIMUS
     Indication: PRODUCT USED FOR UNKNOWN INDICATION
     Dosage: UNK
     Route: 048
  2. AFINITOR [Suspect]
     Active Substance: EVEROLIMUS
     Dosage: UNK, QOD (EVERY OTHER DAY)
     Route: 048
     Dates: end: 20190128
  3. SANDOSTATIN [Suspect]
     Active Substance: OCTREOTIDE ACETATE
     Indication: PANCREATIC NEUROENDOCRINE TUMOUR METASTATIC
     Dosage: 100 UG, Q8H (FOR 15 DAYS AFTER FIRST LAR DOSE)
     Route: 058
     Dates: start: 20141113, end: 201411
  4. SANDOSTATIN [Suspect]
     Active Substance: OCTREOTIDE ACETATE
     Indication: METASTASES TO LIVER
  5. SANDOSTATIN LAR DEPOT [Suspect]
     Active Substance: OCTREOTIDE ACETATE
     Indication: METASTASES TO LIVER
     Dosage: 30 MG, QMO
     Route: 030
  6. INSULIN [Concomitant]
     Active Substance: INSULIN NOS
     Indication: DIABETES MELLITUS
     Route: 065
  7. SANDOSTATIN LAR DEPOT [Suspect]
     Active Substance: OCTREOTIDE ACETATE
     Indication: PANCREATIC NEUROENDOCRINE TUMOUR METASTATIC
     Dosage: 20 MG, QMO
     Route: 030
     Dates: start: 20141114

REACTIONS (22)
  - Decreased appetite [Unknown]
  - Blood pressure systolic increased [Unknown]
  - Pancreatic neuroendocrine tumour [Unknown]
  - Frequent bowel movements [Unknown]
  - Abdominal pain [Unknown]
  - Malaise [Unknown]
  - Body temperature increased [Unknown]
  - Chills [Not Recovered/Not Resolved]
  - Headache [Unknown]
  - Abdominal pain [Recovered/Resolved]
  - Blood glucose abnormal [Unknown]
  - Peripheral swelling [Unknown]
  - Rash [Unknown]
  - Inappropriate schedule of product administration [Unknown]
  - Haemoglobin decreased [Unknown]
  - Malignant neoplasm progression [Unknown]
  - Headache [Recovered/Resolved]
  - Blood glucose decreased [Unknown]
  - Hypoglycaemia [Unknown]
  - Acne [Unknown]
  - Mouth ulceration [Recovering/Resolving]
  - Blood glucose increased [Unknown]

NARRATIVE: CASE EVENT DATE: 201411
